FAERS Safety Report 23046315 (Version 1)
Quarter: 2023Q4

REPORT INFORMATION
  Report Type: Spontaneous
  Country: ES (occurrence: ES)
  Receive Date: 20231009
  Receipt Date: 20231009
  Transmission Date: 20240110
  Serious: Yes (Hospitalization, Other)
  Sender: FDA-Public Use
  Company Number: ES-FreseniusKabi-FK202315901

PATIENT
  Age: 47 Year
  Sex: Female

DRUGS (2)
  1. CARBOPLATIN [Suspect]
     Active Substance: CARBOPLATIN
     Indication: Endometrial cancer stage I
     Dates: start: 202202
  2. ENOXAPARIN [Suspect]
     Active Substance: ENOXAPARIN
     Indication: Antithrombin III deficiency
     Dosage: THERAPEUTIC DOSE (ENOXAPARIN 1 MG/KG EVERY 12 HOURS)

REACTIONS (3)
  - Pulmonary embolism [Recovered/Resolved]
  - Deep vein thrombosis [Recovered/Resolved]
  - Thrombosis [Recovered/Resolved]
